FAERS Safety Report 23082884 (Version 1)
Quarter: 2023Q4

REPORT INFORMATION
  Report Type: Spontaneous
  Country: US (occurrence: None)
  Receive Date: 20231018
  Receipt Date: 20231018
  Transmission Date: 20240110
  Serious: No
  Sender: FDA-Public Use
  Company Number: None

PATIENT
  Age: 14 Month
  Sex: Male
  Weight: 10.46 kg

DRUGS (1)
  1. BEYFORTUS [Suspect]
     Active Substance: NIRSEVIMAB-ALIP
     Indication: Trisomy 21
     Dosage: OTHER FREQUENCY : ONCE;?
     Route: 030
     Dates: start: 20231017, end: 20231017

REACTIONS (1)
  - Haematochezia [None]

NARRATIVE: CASE EVENT DATE: 20231017
